FAERS Safety Report 21901519 (Version 1)
Quarter: 2023Q1

REPORT INFORMATION
  Report Type: Spontaneous
  Country: US (occurrence: None)
  Receive Date: 20230123
  Receipt Date: 20230123
  Transmission Date: 20230418
  Serious: No
  Sender: FDA-Public Use
  Company Number: 2023A001736

PATIENT
  Age: 22601 Day
  Sex: Male
  Weight: 77.1 kg

DRUGS (1)
  1. BREZTRI [Suspect]
     Active Substance: BUDESONIDE\FORMOTEROL\GLYCOPYRROLATE
     Indication: Emphysema
     Dosage: 2 PUFFS INHALED TWO TIMES A DAY
     Route: 055

REACTIONS (15)
  - Overdose [Unknown]
  - Skin discolouration [Recovering/Resolving]
  - Feeding disorder [Recovered/Resolved]
  - Pyrexia [Recovered/Resolved]
  - Vomiting [Recovered/Resolved]
  - Lung disorder [Unknown]
  - Movement disorder [Unknown]
  - Groin pain [Unknown]
  - Pain in extremity [Unknown]
  - Chills [Unknown]
  - Productive cough [Unknown]
  - Chest scan [Unknown]
  - Insomnia [Recovered/Resolved]
  - Headache [Recovered/Resolved]
  - Cough [Recovering/Resolving]

NARRATIVE: CASE EVENT DATE: 20221210
